FAERS Safety Report 15144699 (Version 2)
Quarter: 2018Q3

REPORT INFORMATION
  Report Type: Report from Study
  Country: JP (occurrence: JP)
  Receive Date: 20180713
  Receipt Date: 20180904
  Transmission Date: 20181010
  Serious: Yes (Hospitalization, Other)
  Sender: FDA-Public Use
  Company Number: JP-TAKEDA-2018TUS022107

PATIENT
  Age: 26 Year
  Sex: Female

DRUGS (10)
  1. PONATINIB [Suspect]
     Active Substance: PONATINIB
     Dosage: 45 MG, UNK
     Route: 048
     Dates: start: 20170928, end: 20171002
  2. METHOTREXATE. [Concomitant]
     Active Substance: METHOTREXATE
     Indication: PRODUCT USED FOR UNKNOWN INDICATION
     Dosage: UNK
     Route: 024
     Dates: start: 20170928, end: 20170928
  3. DEXAMETHASONE ACETATE [Concomitant]
     Active Substance: DEXAMETHASONE ACETATE
     Indication: PRODUCT USED FOR UNKNOWN INDICATION
     Dosage: UNK
     Route: 024
     Dates: start: 20170928, end: 20170928
  4. PONATINIB [Suspect]
     Active Substance: PONATINIB
     Indication: ACUTE LYMPHOCYTIC LEUKAEMIA
     Dosage: 30 MG, UNK
     Route: 065
     Dates: start: 201801
  5. PONATINIB [Suspect]
     Active Substance: PONATINIB
     Dosage: 15 MG, UNK
     Route: 065
  6. PONATINIB [Suspect]
     Active Substance: PONATINIB
     Dosage: UNK, QOD
     Route: 065
     Dates: start: 201803
  7. FRAGMIN [Concomitant]
     Active Substance: DALTEPARIN SODIUM
     Indication: PROPHYLAXIS
     Dosage: UNK
     Route: 065
     Dates: start: 20170930, end: 20171103
  8. ETOPOSIDE. [Concomitant]
     Active Substance: ETOPOSIDE
     Indication: TRANSPLANT
     Dosage: UNK
     Route: 065
     Dates: start: 20170929, end: 20171002
  9. FLUCONAZOLE. [Concomitant]
     Active Substance: FLUCONAZOLE
     Indication: PROPHYLAXIS
     Dosage: UNK
     Route: 065
  10. CYCLOPHOSPHAMIDE MONOHYDRATE [Concomitant]
     Active Substance: CYCLOPHOSPHAMIDE
     Indication: TRANSPLANT
     Dosage: UNK
     Route: 065
     Dates: start: 20170929, end: 20171002

REACTIONS (3)
  - Graft versus host disease in skin [Unknown]
  - Pyrexia [Unknown]
  - Blood count abnormal [Unknown]
